FAERS Safety Report 4590141-0 (Version None)
Quarter: 2005Q1

REPORT INFORMATION
  Report Type: 
  Country: None (occurrence: None)
  Receive Date: 20050217
  Receipt Date: 20050208
  Transmission Date: 20050727
  Serious: Yes (Other)
  Sender: FDA-Public Use
  Company Number: HQWYE171508FEB05

PATIENT
  Age: 36 Year
  Sex: Female

DRUGS (1)
  1. INDERAL [Suspect]
     Indication: MIGRAINE PROPHYLAXIS
     Dosage: 120 MG 1X PER 1 DAY
     Route: 048
     Dates: start: 20041014, end: 20050106

REACTIONS (4)
  - EMOTIONAL DISTRESS [None]
  - FATIGUE [None]
  - INSOMNIA [None]
  - NIGHTMARE [None]
